FAERS Safety Report 6685508-0 (Version None)
Quarter: 2010Q2

REPORT INFORMATION
  Report Type: 
  Country: None (occurrence: None)
  Receive Date: 20100419
  Receipt Date: 20100408
  Transmission Date: 20101027
  Serious: No
  Sender: FDA-Public Use
  Company Number: US-BIOGENIDEC-2010BI009981

PATIENT
  Age: 39 Year
  Sex: Female

DRUGS (4)
  1. TYSABRI [Suspect]
     Indication: MULTIPLE SCLEROSIS
     Route: 042
     Dates: start: 20080605, end: 20080101
  2. TYSABRI [Suspect]
     Route: 042
     Dates: start: 20090101
  3. PROVIGIL [Concomitant]
     Indication: FATIGUE
  4. ADDERALL 10 [Concomitant]
     Indication: FATIGUE

REACTIONS (3)
  - FATIGUE [None]
  - INCORRECT DRUG ADMINISTRATION RATE [None]
  - SOMNOLENCE [None]
